FAERS Safety Report 23640588 (Version 3)
Quarter: 2024Q3

REPORT INFORMATION
  Report Type: Spontaneous
  Country: DE (occurrence: DE)
  Receive Date: 20240318
  Receipt Date: 20240710
  Transmission Date: 20241017
  Serious: Yes (Hospitalization)
  Sender: CSL BEHRING
  Company Number: DE-BEH-2024169692

PATIENT
  Sex: Male
  Weight: 83 kg

DRUGS (13)
  1. HIZENTRA [Suspect]
     Active Substance: HUMAN IMMUNOGLOBULIN G
     Indication: Chronic inflammatory demyelinating polyradiculoneuropathy
     Dosage: 150 MILLILITER, QW
     Route: 058
     Dates: start: 20240220
  2. HIZENTRA [Suspect]
     Active Substance: HUMAN IMMUNOGLOBULIN G
     Dosage: 150 MILLILITER, QW
     Route: 058
     Dates: start: 20240227
  3. HIZENTRA [Suspect]
     Active Substance: HUMAN IMMUNOGLOBULIN G
     Dosage: 10 G, TIW
     Route: 058
     Dates: start: 20240220
  4. HIZENTRA [Suspect]
     Active Substance: HUMAN IMMUNOGLOBULIN G
     Dosage: 1 G, TOT
     Route: 065
     Dates: start: 20240220
  5. HIZENTRA [Suspect]
     Active Substance: HUMAN IMMUNOGLOBULIN G
     Dosage: 10 G
     Route: 058
     Dates: start: 20240227
  6. HIZENTRA [Suspect]
     Active Substance: HUMAN IMMUNOGLOBULIN G
     Dosage: 10 G
     Route: 058
     Dates: start: 20240301
  7. HIZENTRA [Suspect]
     Active Substance: HUMAN IMMUNOGLOBULIN G
     Dosage: 10 G
     Route: 058
     Dates: start: 20240303
  8. HIZENTRA [Suspect]
     Active Substance: HUMAN IMMUNOGLOBULIN G
     Dosage: UNK
     Route: 065
     Dates: start: 20240310
  9. GAMUNEX [Concomitant]
     Active Substance: HUMAN IMMUNOGLOBULIN G
     Indication: Chronic inflammatory demyelinating polyradiculoneuropathy
     Dosage: 90 GRAM OVER 2 DAYS, QMT
     Dates: start: 202210
  10. GAMUNEX [Concomitant]
     Active Substance: HUMAN IMMUNOGLOBULIN G
     Dosage: 90 GRAM OVER 2 DAYS
     Dates: start: 202305
  11. GAMUNEX [Concomitant]
     Active Substance: HUMAN IMMUNOGLOBULIN G
     Dosage: 45 GRAM
     Dates: start: 20240220
  12. MEROPENEM [Concomitant]
     Active Substance: MEROPENEM
     Indication: Urinary tract infection
     Dosage: 3X 1 G PER DAY
     Route: 042
     Dates: start: 20240210, end: 20240218
  13. HEPARIN [Concomitant]
     Active Substance: HEPARIN SODIUM
     Indication: Vascular pain
     Dosage: UNK
     Dates: start: 20240304

REACTIONS (19)
  - Cerebellar infarction [Recovered/Resolved]
  - Vertigo [Recovered/Resolved]
  - Nausea [Recovered/Resolved]
  - Vomiting [Recovered/Resolved]
  - Gait inability [Recovered/Resolved]
  - Balance disorder [Recovered/Resolved]
  - Injection site swelling [Recovering/Resolving]
  - Injection site discomfort [Recovered/Resolved]
  - Injection site swelling [Recovering/Resolving]
  - Injection site discomfort [Recovered/Resolved]
  - Nausea [Recovered/Resolved]
  - Poor venous access [Unknown]
  - Product use issue [Unknown]
  - Incorrect product administration duration [Unknown]
  - Fat tissue decreased [Unknown]
  - Infusion site discomfort [Unknown]
  - Infusion site swelling [Unknown]
  - Infusion site swelling [Recovering/Resolving]
  - Infusion site discomfort [Recovered/Resolved]

NARRATIVE: CASE EVENT DATE: 20240227
